FAERS Safety Report 5487322-0 (Version None)
Quarter: 2007Q4

REPORT INFORMATION
  Report Type: 
  Country: None (occurrence: None)
  Receive Date: 20071015
  Receipt Date: 20071008
  Transmission Date: 20080405
  Serious: Yes (Death)
  Sender: FDA-Public Use
  Company Number: 163-21880-07100502

PATIENT
  Age: 82 Year
  Sex: Female

DRUGS (4)
  1. REVLIMID [Suspect]
     Indication: MULTIPLE MYELOMA
     Dosage: 15 MG, QD, ORAL
     Route: 048
     Dates: start: 20070701, end: 20070703
  2. METOPROLOL TARTRATE [Concomitant]
  3. CLONIDINE (CLONIDINE) (UNKNOWN) [Concomitant]
  4. SYNTHROID [Concomitant]

REACTIONS (3)
  - ANAEMIA [None]
  - DISEASE PROGRESSION [None]
  - MULTIPLE MYELOMA [None]
